FAERS Safety Report 4743484-1 (Version None)
Quarter: 2005Q3

REPORT INFORMATION
  Report Type: 
  Country: None (occurrence: None)
  Receive Date: 20050809
  Receipt Date: 20050804
  Transmission Date: 20060218
  Serious: Yes (Hospitalization, Other)
  Sender: FDA-Public Use
  Company Number: HQWYE706304AUG05

PATIENT
  Age: 79 Year
  Sex: Male

DRUGS (8)
  1. CORDARONE [Suspect]
     Indication: ATRIAL FIBRILLATION
     Dosage: 100 MG 1 X PER 1 DAY, ORAL
     Route: 048
     Dates: start: 20050301, end: 20050701
  2. AVELOX [Suspect]
     Indication: BRONCHITIS
     Dosage: 400 MG 1X PER 1 DAY, ORAL
     Route: 048
     Dates: start: 20050707, end: 20050707
  3. ALLOPURINOL [Concomitant]
  4. PRAVACHOL [Concomitant]
  5. LISINOPRIL [Concomitant]
  6. MECLIZINE [Concomitant]
  7. VITAMINS (VITAMINS) [Concomitant]
  8. GABAPENTIN [Concomitant]

REACTIONS (5)
  - ASTHENIA [None]
  - MEDICATION ERROR [None]
  - SYNCOPE [None]
  - TREMOR [None]
  - UNDERDOSE [None]
